FAERS Safety Report 7236677-5 (Version None)
Quarter: 2011Q1

REPORT INFORMATION
  Report Type: 
  Country: None (occurrence: None)
  Receive Date: 20110120
  Receipt Date: 20110113
  Transmission Date: 20110831
  Serious: Yes (Other)
  Sender: FDA-Public Use
  Company Number: US-GILEAD-2010-0032569

PATIENT
  Age: 30 Year
  Sex: Female

DRUGS (5)
  1. NORVIR [Concomitant]
     Indication: HIV INFECTION
     Route: 048
     Dates: start: 20100621
  2. TRUVADA [Suspect]
     Indication: HIV INFECTION
     Route: 048
     Dates: start: 20100717
  3. COMBIVIR [Concomitant]
     Indication: HIV INFECTION
     Route: 048
     Dates: start: 20100621, end: 20100717
  4. REYATAZ [Concomitant]
     Indication: HIV INFECTION
     Route: 048
     Dates: start: 20100621
  5. RETROVIR [Concomitant]
     Indication: HIV INFECTION
     Route: 042
     Dates: start: 20100914, end: 20100914

REACTIONS (2)
  - UMBILICAL CORD COMPRESSION [None]
  - PREGNANCY [None]
